FAERS Safety Report 17244948 (Version 2)
Quarter: 2020Q4

REPORT INFORMATION
  Report Type: Report from Study
  Country: US (occurrence: US)
  Receive Date: 20200108
  Receipt Date: 20201028
  Transmission Date: 20210113
  Serious: No
  Sender: FDA-Public Use
  Company Number: NVSC2020US001940

PATIENT
  Sex: Male

DRUGS (2)
  1. COSENTYX [Suspect]
     Active Substance: SECUKINUMAB
     Indication: PSORIASIS
  2. COSENTYX [Suspect]
     Active Substance: SECUKINUMAB
     Indication: PSORIASIS
     Dosage: 300 MG, QMO
     Route: 058
     Dates: start: 20190806

REACTIONS (5)
  - Psoriasis [Not Recovered/Not Resolved]
  - Skin exfoliation [Unknown]
  - Drug ineffective [Not Recovered/Not Resolved]
  - Skin plaque [Unknown]
  - Skin fissures [Unknown]
